FAERS Safety Report 8537146-2 (Version None)
Quarter: 2012Q3

REPORT INFORMATION
  Report Type: 
  Country: None (occurrence: None)
  Receive Date: 20120725
  Receipt Date: 20120716
  Transmission Date: 20120928
  Serious: Yes (Hospitalization, Other)
  Sender: FDA-Public Use
  Company Number: BR-ASTRAZENECA-2011SE74750

PATIENT
  Sex: Female

DRUGS (3)
  1. FOLIC NEUTROFER [Suspect]
     Indication: VITAMIN SUPPLEMENTATION
     Route: 048
     Dates: start: 20120101
  2. SYMBICORT [Suspect]
     Indication: ASTHMA
     Dosage: 160/4.5 MCG, FREQUENCY UNKNOWN
     Route: 055
     Dates: start: 20110501, end: 20110601
  3. SYMBICORT [Suspect]
     Dosage: 160/4.5 MCG, FREQUENCY UNKNOWN
     Route: 055
     Dates: start: 20111207

REACTIONS (5)
  - MATERNAL EXPOSURE DURING PREGNANCY [None]
  - ASTHMA [None]
  - PNEUMONIA [None]
  - INTENTIONAL DRUG MISUSE [None]
  - AMNIOTIC FLUID VOLUME INCREASED [None]
